FAERS Safety Report 23346359 (Version 1)
Quarter: 2023Q4

REPORT INFORMATION
  Report Type: Spontaneous
  Country: None (occurrence: US)
  Receive Date: 20231228
  Receipt Date: 20231228
  Transmission Date: 20240109
  Serious: No
  Sender: FDA-Public Use
  Company Number: US-STI Pharma LLC-2149881

PATIENT
  Age: 75 Year
  Sex: Male

DRUGS (3)
  1. ETHAMBUTOL HYDROCHLORIDE [Suspect]
     Active Substance: ETHAMBUTOL HYDROCHLORIDE
  2. RIFAMPIN [Concomitant]
     Active Substance: RIFAMPIN
  3. AZITHROMYCIN [Concomitant]
     Active Substance: AZITHROMYCIN

REACTIONS (4)
  - Nausea [Unknown]
  - Chromaturia [Unknown]
  - Haemangioma of skin [Unknown]
  - Disease progression [Unknown]
